FAERS Safety Report 17584847 (Version 1)
Quarter: 2020Q1

REPORT INFORMATION
  Report Type: Spontaneous
  Country: US (occurrence: US)
  Receive Date: 20200325
  Receipt Date: 20200325
  Transmission Date: 20200409
  Serious: Yes (Life-Threatening)
  Sender: FDA-Public Use
  Company Number: None

PATIENT
  Age: 51 Year
  Sex: Female
  Weight: 117 kg

DRUGS (1)
  1. BYDUREON BCISE [Suspect]
     Active Substance: EXENATIDE
     Indication: DIABETES MELLITUS
     Dosage: ?          QUANTITY:1 INJECTION(S);OTHER FREQUENCY:1 TIME A WEEK;?
     Route: 058
     Dates: start: 20191018, end: 20200306

REACTIONS (9)
  - Injection site bruising [None]
  - Dysuria [None]
  - Myalgia [None]
  - Injection site nodule [None]
  - Injection site swelling [None]
  - Injection site discolouration [None]
  - Injection site scar [None]
  - Injection site pruritus [None]
  - Injection site pain [None]

NARRATIVE: CASE EVENT DATE: 20200223
